FAERS Safety Report 8268765-9 (Version None)
Quarter: 2012Q2

REPORT INFORMATION
  Report Type: 
  Country: None (occurrence: None)
  Receive Date: 20120409
  Receipt Date: 20120409
  Transmission Date: 20120825
  Serious: Yes (Other)
  Sender: FDA-Public Use
  Company Number: None

PATIENT
  Age: 61 Year
  Sex: Female
  Weight: 74.842 kg

DRUGS (1)
  1. BONIVA [Suspect]
     Indication: OSTEOPOROSIS
     Dosage: 1 PILL
     Dates: start: 20120402, end: 20120402

REACTIONS (10)
  - BONE PAIN [None]
  - DYSKINESIA [None]
  - BACK PAIN [None]
  - TREMOR [None]
  - INFLUENZA [None]
  - CHILLS [None]
  - GROIN PAIN [None]
  - ARTHRALGIA [None]
  - PAIN IN EXTREMITY [None]
  - PAIN [None]
